FAERS Safety Report 8025619-0 (Version None)
Quarter: 2012Q1

REPORT INFORMATION
  Report Type: 
  Country: None (occurrence: None)
  Receive Date: 20120105
  Receipt Date: 20111230
  Transmission Date: 20120608
  Serious: Yes (Hospitalization, Other)
  Sender: FDA-Public Use
  Company Number: CA-ABBOTT-11P-028-0874626-00

PATIENT
  Sex: Female
  Weight: 53.118 kg

DRUGS (10)
  1. HUMIRA [Suspect]
     Indication: CROHN'S DISEASE
     Route: 058
     Dates: start: 20110831, end: 20111111
  2. TEVA-TRAZODONE [Concomitant]
     Indication: SLEEP DISORDER THERAPY
     Route: 048
  3. IRON [Concomitant]
     Indication: CROHN'S DISEASE
     Route: 048
     Dates: start: 20110301
  4. HUMIRA [Suspect]
  5. CALCIUM ACETATE [Concomitant]
     Indication: OSTEOPOROSIS PROPHYLAXIS
     Route: 048
     Dates: start: 20040101
  6. EFFEXOR [Concomitant]
     Indication: SOCIAL PHOBIA
     Route: 048
  7. NOVO-ALENDRONATE [Concomitant]
     Indication: CROHN'S DISEASE
     Route: 048
     Dates: start: 20110301
  8. EURO D [Concomitant]
     Indication: HORMONE THERAPY
     Route: 048
  9. EURO D [Concomitant]
     Indication: BONE DISORDER
  10. VITAMIN C [Concomitant]
     Indication: CROHN'S DISEASE
     Route: 048
     Dates: start: 20110301

REACTIONS (6)
  - ESCHERICHIA INFECTION [None]
  - IMMUNODEFICIENCY [None]
  - FISTULA [None]
  - PYREXIA [None]
  - CYST [None]
  - ABSCESS [None]
